FAERS Safety Report 24038472 (Version 1)
Quarter: 2024Q3

REPORT INFORMATION
  Report Type: Report from Study
  Country: US (occurrence: US)
  Receive Date: 20240702
  Receipt Date: 20240702
  Transmission Date: 20241017
  Serious: No
  Sender: RANBAXY
  Company Number: US-SUN PHARMACEUTICAL INDUSTRIES LTD-2024R1-453418

PATIENT
  Sex: Male

DRUGS (1)
  1. ISOTRETINOIN [Suspect]
     Active Substance: ISOTRETINOIN
     Indication: Acne
     Dosage: UNK, DAILY
     Route: 065
     Dates: start: 20231003, end: 20240619

REACTIONS (3)
  - Therapy cessation [Unknown]
  - Condition aggravated [Unknown]
  - Therapy partial responder [Unknown]
